FAERS Safety Report 4645940-3 (Version None)
Quarter: 2005Q2

REPORT INFORMATION
  Report Type: 
  Country: None (occurrence: None)
  Receive Date: 20050427
  Receipt Date: 20050418
  Transmission Date: 20051028
  Serious: Yes (Hospitalization)
  Sender: FDA-Public Use
  Company Number: US-AMGEN-US127729

PATIENT
  Sex: Female

DRUGS (11)
  1. ENBREL [Suspect]
     Indication: PSORIASIS
     Route: 058
     Dates: start: 20040601, end: 20041101
  2. FOSAMAX [Concomitant]
  3. TOPROL-XL [Concomitant]
  4. ALDACTONE [Concomitant]
  5. NORVASC [Concomitant]
  6. NEXIUM [Concomitant]
  7. ASPIRIN [Concomitant]
  8. HYDROCHLOROTHIAZIDE [Concomitant]
  9. CELEXA [Concomitant]
  10. VITAMIN E [Concomitant]
  11. MULTI-VITAMINS [Concomitant]

REACTIONS (2)
  - FATIGUE [None]
  - HAEMOGLOBIN DECREASED [None]
